FAERS Safety Report 8984933 (Version 2)
Quarter: 2012Q4

REPORT INFORMATION
  Report Type: 
  Country: JP (occurrence: JP)
  Receive Date: 20121226
  Receipt Date: 20121231
  Transmission Date: 20130627
  Serious: Yes (Life-Threatening)
  Sender: FDA-Public Use
  Company Number: PHHY2012JP118472

PATIENT
  Age: 92 Year
  Sex: Female
  Weight: 28 kg

DRUGS (5)
  1. VOLTAREN [Suspect]
     Indication: PYREXIA
     Dosage: 12.5 mg, daily
     Route: 054
     Dates: start: 20120913
  2. VOLTAREN [Suspect]
     Dosage: 12.5 mg, QD
     Route: 054
     Dates: start: 20121128, end: 20121129
  3. VOLTAREN [Suspect]
     Dosage: 12.5 mg, QD
     Route: 054
     Dates: start: 20121202
  4. VOLTAREN [Suspect]
     Dosage: 12.5 mg, QD
     Route: 054
     Dates: start: 20121204
  5. VOLTAREN [Suspect]
     Dosage: 12.5 mg, QD
     Route: 054
     Dates: start: 20121206, end: 20121212

REACTIONS (5)
  - Stevens-Johnson syndrome [Not Recovered/Not Resolved]
  - Scab [Not Recovered/Not Resolved]
  - Melaena [Not Recovered/Not Resolved]
  - Anal erosion [Not Recovered/Not Resolved]
  - Anal haemorrhage [Not Recovered/Not Resolved]
